FAERS Safety Report 4621530-3 (Version None)
Quarter: 2005Q1

REPORT INFORMATION
  Report Type: 
  Country: None (occurrence: None)
  Receive Date: 20050328
  Receipt Date: 20040614
  Transmission Date: 20050727
  Serious: No
  Sender: FDA-Public Use
  Company Number: 9811

PATIENT
  Age: 37 Year
  Sex: Female

DRUGS (2)
  1. METHOTREXATE [Suspect]
  2. PLACEBO FOR ETANERCEPT [Suspect]
     Dosage: 25 MG 2/WK
     Dates: start: 20010604, end: 20040429

REACTIONS (3)
  - PNEUMONIA VIRAL [None]
  - STAPHYLOCOCCAL INFECTION [None]
  - SUPERINFECTION [None]
